FAERS Safety Report 13524256 (Version 1)
Quarter: 2017Q2

REPORT INFORMATION
  Report Type: Spontaneous
  Country: IN (occurrence: IN)
  Receive Date: 20170508
  Receipt Date: 20170508
  Transmission Date: 20170830
  Serious: Yes (Hospitalization, Other)
  Sender: FDA-Public Use
  Company Number: IN-JNJFOC-20170503763

PATIENT

DRUGS (1)
  1. RISPERIDONE. [Suspect]
     Active Substance: RISPERIDONE
     Indication: DELUSIONAL DISORDER, UNSPECIFIED TYPE
     Dosage: MEAN DOSE: 4.9 MG
     Route: 065

REACTIONS (9)
  - Hospitalisation [Unknown]
  - Off label use [Unknown]
  - Tremor [Unknown]
  - Adverse reaction [Unknown]
  - Tardive dyskinesia [Unknown]
  - Salivary hypersecretion [Unknown]
  - Sedation [Unknown]
  - Muscle rigidity [Unknown]
  - Product use in unapproved indication [Unknown]
